FAERS Safety Report 7586704-0 (Version None)
Quarter: 2011Q3

REPORT INFORMATION
  Report Type: 
  Country: None (occurrence: None)
  Receive Date: 20110701
  Receipt Date: 20110623
  Transmission Date: 20111222
  Serious: Yes (Hospitalization, Other)
  Sender: FDA-Public Use
  Company Number: US-US-EMD SERONO, INC.-238352J08USA

PATIENT
  Sex: Male
  Weight: 92 kg

DRUGS (1)
  1. REBIF [Suspect]
     Indication: MULTIPLE SCLEROSIS
     Route: 058
     Dates: start: 20040623

REACTIONS (4)
  - CORONARY ARTERY OCCLUSION [None]
  - CORONARY ARTERY DISEASE [None]
  - DIABETES MELLITUS [None]
  - MYOCARDIAL INFARCTION [None]
